FAERS Safety Report 9376850 (Version 1)
Quarter: 2013Q3

REPORT INFORMATION
  Report Type: Spontaneous
  Country: FR (occurrence: FR)
  Receive Date: 20130701
  Receipt Date: 20130701
  Transmission Date: 20140515
  Serious: Yes (Life-Threatening)
  Sender: FDA-Public Use
  Company Number: FR-ROCHE-1221461

PATIENT
  Age: 59 Year
  Sex: Female

DRUGS (4)
  1. CELLCEPT [Suspect]
     Indication: PROPHYLAXIS
     Route: 048
     Dates: start: 1990
  2. NEORAL [Suspect]
     Indication: PROPHYLAXIS
     Route: 048
     Dates: start: 1990, end: 2008
  3. SOLUPRED (FRANCE) [Suspect]
     Indication: PROPHYLAXIS
     Route: 048
     Dates: start: 1990
  4. RAPAMUNE [Suspect]
     Indication: PROPHYLAXIS
     Route: 048
     Dates: start: 2008, end: 2013

REACTIONS (5)
  - Lymphoma [Recovered/Resolved]
  - Squamous cell carcinoma [Recovered/Resolved]
  - Neoplasm malignant [Recovered/Resolved with Sequelae]
  - Squamous cell carcinoma [Recovered/Resolved]
  - Basal cell carcinoma [Recovered/Resolved]
